FAERS Safety Report 7228752-6 (Version None)
Quarter: 2011Q1

REPORT INFORMATION
  Report Type: 
  Country: None (occurrence: None)
  Receive Date: 20110117
  Receipt Date: 20110107
  Transmission Date: 20110831
  Serious: No
  Sender: FDA-Public Use
  Company Number: US-BIOGENIDEC-2011BI001649

PATIENT
  Sex: Female

DRUGS (2)
  1. TYSABRI [Suspect]
     Indication: MULTIPLE SCLEROSIS
     Route: 042
     Dates: start: 20071029, end: 20080930
  2. TYSABRI [Suspect]
     Route: 042
     Dates: start: 20100816

REACTIONS (2)
  - URINARY TRACT INFECTION [None]
  - NASOPHARYNGITIS [None]
